FAERS Safety Report 23769156 (Version 1)
Quarter: 2024Q2

REPORT INFORMATION
  Report Type: Report from Study
  Country: GB (occurrence: GB)
  Receive Date: 20240422
  Receipt Date: 20240422
  Transmission Date: 20240716
  Serious: Yes (Death, Hospitalization, Other)
  Sender: FDA-Public Use
  Company Number: GB-SAMSUNG BIOEPIS-SB-2024-09741

PATIENT
  Age: 81 Year
  Sex: Female
  Weight: 70.2 kg

DRUGS (2)
  1. METHOTREXATE SODIUM [Suspect]
     Active Substance: METHOTREXATE SODIUM
     Dosage: UNK
     Route: 065
     Dates: start: 20211115
  2. ETANERCEPT [Suspect]
     Active Substance: ETANERCEPT
     Indication: Rheumatoid arthritis
     Dosage: 50 MG, ONCE A WEEK, SC
     Route: 058
     Dates: start: 20231101

REACTIONS (11)
  - Death [Fatal]
  - Respiratory acidosis [Fatal]
  - Metabolic acidosis [Fatal]
  - Lactic acidosis [Fatal]
  - Dyspnoea [Fatal]
  - Hypotension [Fatal]
  - Respiratory tract infection [Fatal]
  - Urinary tract infection [Fatal]
  - Constipation [Fatal]
  - Abdominal discomfort [Fatal]
  - Decreased appetite [Fatal]

NARRATIVE: CASE EVENT DATE: 20240129
